FAERS Safety Report 17035504 (Version 3)
Quarter: 2019Q4

REPORT INFORMATION
  Report Type: Report from Study
  Country: US (occurrence: US)
  Receive Date: 20191115
  Receipt Date: 20191205
  Transmission Date: 20200122
  Serious: Yes (Life-Threatening, Hospitalization)
  Sender: FDA-Public Use
  Company Number: US-AMGEN-USANI2019189167

PATIENT
  Age: 74 Year
  Sex: Male

DRUGS (1)
  1. TALIMOGENE LAHERPAREPVEC [Suspect]
     Active Substance: TALIMOGENE LAHERPAREPVEC
     Indication: MELANOMA RECURRENT
     Dosage: 1 MILLILITER
     Route: 026
     Dates: start: 20171116

REACTIONS (2)
  - Chills [Recovered/Resolved]
  - Pyrexia [Recovered/Resolved]

NARRATIVE: CASE EVENT DATE: 20171207
